FAERS Safety Report 5285741-9 (Version None)
Quarter: 2007Q1

REPORT INFORMATION
  Report Type: 
  Country: None (occurrence: None)
  Receive Date: 20070130
  Receipt Date: 20060221
  Transmission Date: 20070707
  Serious: Yes (Life-Threatening)
  Sender: FDA-Public Use
  Company Number: 2006RL000055

PATIENT
  Age: 85 Year
  Sex: Female

DRUGS (7)
  1. PROPAFENONE HCL [Suspect]
     Indication: ATRIAL FIBRILLATION
     Dosage: 2 DF;1X;IV
     Route: 042
     Dates: start: 20060204, end: 20060204
  2. SOTALOL HCL [Suspect]
     Indication: ARRHYTHMIA
     Dosage: 2 DF;QD;PO
     Route: 048
     Dates: start: 20050101, end: 20060204
  3. VALSARTAN [Concomitant]
  4. FUROSEMIDE [Concomitant]
  5. SPIRONOLACTONE [Concomitant]
  6. CEFTRIAXONE SODIUM [Concomitant]
  7. POTASSIUM CHLORIDE [Concomitant]

REACTIONS (1)
  - VENTRICULAR ASYSTOLE [None]
